FAERS Safety Report 8232457-2 (Version None)
Quarter: 2012Q1

REPORT INFORMATION
  Report Type: 
  Country: None (occurrence: None)
  Receive Date: 20120323
  Receipt Date: 20120316
  Transmission Date: 20120608
  Serious: Yes (Hospitalization)
  Sender: FDA-Public Use
  Company Number: DE-TEVA-328736GER

PATIENT
  Age: 4 Day
  Sex: Female

DRUGS (1)
  1. SUMATRIPTAN [Suspect]
     Route: 064

REACTIONS (2)
  - BRADYCARDIA [None]
  - APNOEA [None]
